FAERS Safety Report 6322821-0 (Version None)
Quarter: 2009Q3

REPORT INFORMATION
  Report Type: 
  Country: None (occurrence: None)
  Receive Date: 20090824
  Receipt Date: 20090817
  Transmission Date: 20100115
  Serious: Yes (Other)
  Sender: FDA-Public Use
  Company Number: PHEH2009US09460

PATIENT
  Age: 94 Year
  Sex: Male

DRUGS (1)
  1. TEKTURNA [Suspect]
     Dosage: 150 MG, UNK

REACTIONS (4)
  - MACULAR DEGENERATION [None]
  - NASAL CONGESTION [None]
  - PERIORBITAL OEDEMA [None]
  - SWELLING FACE [None]
